FAERS Safety Report 20047167 (Version 1)
Quarter: 2021Q4

REPORT INFORMATION
  Report Type: Spontaneous
  Country: IT (occurrence: IT)
  Receive Date: 20211109
  Receipt Date: 20211109
  Transmission Date: 20220303
  Serious: Yes (Other)
  Sender: FDA-Public Use
  Company Number: IT-ABBVIE-21K-083-4146220-00

PATIENT
  Age: 65 Year
  Sex: Male

DRUGS (6)
  1. VALPROATE SODIUM [Suspect]
     Active Substance: VALPROATE SODIUM
     Indication: Irritability
     Route: 048
     Dates: start: 20190811, end: 20190811
  2. XANAX [Suspect]
     Active Substance: ALPRAZOLAM
     Indication: Irritability
     Route: 048
     Dates: start: 20170801, end: 20190811
  3. XANAX [Suspect]
     Active Substance: ALPRAZOLAM
     Route: 048
  4. LAMOTRIGINE [Suspect]
     Active Substance: LAMOTRIGINE
     Indication: Irritability
     Route: 048
     Dates: start: 20190801, end: 20190811
  5. QUETIAPINE [Concomitant]
     Active Substance: QUETIAPINE
     Indication: Product used for unknown indication
  6. VENLAFAXINE HYDROCHLORIDE [Concomitant]
     Active Substance: VENLAFAXINE HYDROCHLORIDE
     Indication: Product used for unknown indication
     Dates: start: 2021

REACTIONS (3)
  - Drug interaction [Unknown]
  - Sopor [Recovering/Resolving]
  - Urinary incontinence [Recovering/Resolving]

NARRATIVE: CASE EVENT DATE: 20190811
